FAERS Safety Report 7437881-3 (Version None)
Quarter: 2011Q2

REPORT INFORMATION
  Report Type: 
  Country: None (occurrence: None)
  Receive Date: 20110426
  Receipt Date: 20110418
  Transmission Date: 20111010
  Serious: Yes (Hospitalization)
  Sender: FDA-Public Use
  Company Number: B0702550A

PATIENT
  Sex: Male
  Weight: 71 kg

DRUGS (1)
  1. CHLORAMBUCIL [Suspect]
     Dosage: 56MG CYCLIC
     Route: 065
     Dates: start: 20101026

REACTIONS (3)
  - VENTRICULAR TACHYCARDIA [None]
  - FEBRILE NEUTROPENIA [None]
  - BRONCHOPNEUMONIA [None]
